FAERS Safety Report 15097092 (Version 1)
Quarter: 2018Q2

REPORT INFORMATION
  Report Type: Spontaneous
  Country: US (occurrence: US)
  Receive Date: 20180610
  Receipt Date: 20180610
  Transmission Date: 20180711
  Serious: Yes (Other)
  Sender: FDA-Public Use
  Company Number: None

PATIENT
  Age: 46 Year
  Sex: Female
  Weight: 92.7 kg

DRUGS (13)
  1. CYCLAFEM [Concomitant]
  2. SERTRALINE [Concomitant]
     Active Substance: SERTRALINE HYDROCHLORIDE
  3. THYROXINE [Concomitant]
     Active Substance: LEVOTHYROXINE
  4. LOSARTAN. [Concomitant]
     Active Substance: LOSARTAN
  5. METFORMIN [Concomitant]
     Active Substance: METFORMIN HYDROCHLORIDE
  6. VOLTAREN [Concomitant]
     Active Substance: DICLOFENAC SODIUM
  7. ZYRTEC [Concomitant]
     Active Substance: CETIRIZINE HYDROCHLORIDE
  8. IBUPROFEN. [Concomitant]
     Active Substance: IBUPROFEN
  9. BASAGLAR KWIKPEN (INSULIN GLARGINE) [Concomitant]
  10. BYDUREON [Suspect]
     Active Substance: EXENATIDE
     Indication: DIABETES MELLITUS
     Dosage: ?          QUANTITY:4 DF DOSAGE FORM;?
     Route: 058
     Dates: start: 20180102, end: 20180320
  11. DIVALPROEX ER [Concomitant]
     Active Substance: DIVALPROEX SODIUM
  12. BUSPRIRONE [Concomitant]
  13. ATENOLOL. [Concomitant]
     Active Substance: ATENOLOL

REACTIONS (5)
  - Injection site bruising [None]
  - Injection site mass [None]
  - Injection site erythema [None]
  - Injection site pruritus [None]
  - Injection site pain [None]

NARRATIVE: CASE EVENT DATE: 20180227
